FAERS Safety Report 10567818 (Version 3)
Quarter: 2015Q1

REPORT INFORMATION
  Report Type: Spontaneous
  Country: JP (occurrence: None)
  Receive Date: 20141104
  Receipt Date: 20150106
  Transmission Date: 20150720
  Serious: Yes (Death, Life-Threatening, Other)
  Sender: FDA-Public Use
  Company Number: 2014MPI01376

PATIENT
  Age: 80 Year
  Sex: Male
  Weight: 63.8 kg

DRUGS (2)
  1. SOL-MELCORT (METHYLPREDNISOLONE SODIUM SUCCINATE) [Concomitant]
  2. ADCETRIS [Suspect]
     Active Substance: BRENTUXIMAB VEDOTIN
     Indication: ANAPLASTIC LARGE-CELL LYMPHOMA
     Dosage: 0.9 MG/KG, Q21D, IV DRIP
     Route: 041
     Dates: start: 20140718, end: 20140718

REACTIONS (6)
  - Liver disorder [None]
  - Neutrophil count decreased [None]
  - Febrile neutropenia [None]
  - Condition aggravated [None]
  - Disseminated intravascular coagulation [None]
  - Blood lactate dehydrogenase increased [None]

NARRATIVE: CASE EVENT DATE: 20140701
